FAERS Safety Report 7647139-5 (Version None)
Quarter: 2011Q3

REPORT INFORMATION
  Report Type: 
  Country: None (occurrence: None)
  Receive Date: 20110729
  Receipt Date: 20110729
  Transmission Date: 20111222
  Serious: Yes (Disabling)
  Sender: FDA-Public Use
  Company Number: None

PATIENT
  Age: 72 Year
  Sex: Female
  Weight: 53.6 kg

DRUGS (1)
  1. CLARITHROMYCIN [Suspect]
     Indication: SINUSITIS
     Dosage: 500MG 1 TAB EVERY 12 HOURS BY MOUTH
     Route: 048
     Dates: start: 20110223, end: 20110226

REACTIONS (4)
  - ANOSMIA [None]
  - DYSGEUSIA [None]
  - DIARRHOEA [None]
  - NAUSEA [None]
